FAERS Safety Report 5750334-3 (Version None)
Quarter: 2008Q2

REPORT INFORMATION
  Report Type: 
  Country: None (occurrence: None)
  Receive Date: 20080528
  Receipt Date: 20080523
  Transmission Date: 20081010
  Serious: Yes (Other)
  Sender: FDA-Public Use
  Company Number: IT-SP-2008-01725

PATIENT
  Sex: Male

DRUGS (1)
  1. BCG  THERAPEUTICS [Suspect]
     Indication: BLADDER CANCER
     Route: 065
     Dates: start: 20080402

REACTIONS (7)
  - BOVINE TUBERCULOSIS [None]
  - DELIRIUM [None]
  - HAEMORRHAGE [None]
  - NODULE [None]
  - PYREXIA [None]
  - RENAL CYST [None]
  - TESTICULAR SWELLING [None]
